FAERS Safety Report 9726389 (Version 2)
Quarter: 2013Q4

REPORT INFORMATION
  Report Type: Spontaneous
  Country: FR (occurrence: FR)
  Receive Date: 20131203
  Receipt Date: 20131203
  Transmission Date: 20140711
  Serious: Yes (Hospitalization)
  Sender: FDA-Public Use
  Company Number: FR-ASTRAZENECA-2013SE69291

PATIENT
  Age: 79 Year
  Sex: Male

DRUGS (7)
  1. CRESTOR [Suspect]
     Indication: PROPHYLAXIS
     Route: 048
     Dates: end: 2013
  2. CRESTOR [Suspect]
     Indication: PROPHYLAXIS
     Route: 048
     Dates: start: 2013
  3. BETA-BLOCKER [Concomitant]
  4. DIURETIC [Concomitant]
  5. ACE INHIBITOR [Concomitant]
  6. HYPOGLYCEMIC SULFONAMIDE [Concomitant]
     Indication: DIABETES MELLITUS
  7. GLUCOPHAGE [Concomitant]
     Indication: DIABETES MELLITUS

REACTIONS (7)
  - Urinary bladder polyp [Unknown]
  - Epicondylitis [Recovering/Resolving]
  - Paraesthesia [Unknown]
  - Restless legs syndrome [Unknown]
  - Arthralgia [Recovering/Resolving]
  - Middle insomnia [Unknown]
  - Off label use [Unknown]
